FAERS Safety Report 15753247 (Version 1)
Quarter: 2018Q4

REPORT INFORMATION
  Report Type: Spontaneous
  Country: IT (occurrence: IT)
  Receive Date: 20181222
  Receipt Date: 20181222
  Transmission Date: 20190205
  Serious: Yes (Hospitalization)
  Sender: FDA-Public Use
  Company Number: IT-TEVA-2018-IT-989787

PATIENT
  Age: 67 Year
  Sex: Female

DRUGS (2)
  1. EPIRUBICIN HYDROCHLORIDE. [Suspect]
     Active Substance: EPIRUBICIN HYDROCHLORIDE
     Indication: BREAST CANCER
     Route: 065
  2. CYCLOPHOSPHAMIDE. [Suspect]
     Active Substance: CYCLOPHOSPHAMIDE
     Indication: BREAST CANCER
     Route: 065

REACTIONS (5)
  - Pyrexia [Unknown]
  - Dysphagia [Unknown]
  - Neutropenia [Unknown]
  - Loss of consciousness [Unknown]
  - Oesophagitis [Unknown]

NARRATIVE: CASE EVENT DATE: 20180820
